FAERS Safety Report 16036228 (Version 1)
Quarter: 2019Q1

REPORT INFORMATION
  Report Type: Spontaneous
  Country: US (occurrence: US)
  Receive Date: 20190305
  Receipt Date: 20190305
  Transmission Date: 20190418
  Serious: No
  Sender: FDA-Public Use
  Company Number: US-ALLERGAN-1821746US

PATIENT
  Sex: Female

DRUGS (3)
  1. REPLENS [Concomitant]
     Active Substance: CARBOMER 934\GLYCERIN\METHYLPARABEN\PROPYLPARABEN\SODIUM HYDROXIDE
     Indication: VULVOVAGINAL DRYNESS
     Dosage: UNK
     Route: 065
  2. ESTRACE [Suspect]
     Active Substance: ESTRADIOL
     Dosage: 1 G, Q WEEK
     Route: 067
  3. ESTRACE [Suspect]
     Active Substance: ESTRADIOL
     Indication: VULVOVAGINAL INFLAMMATION
     Dosage: UNK
     Route: 067
     Dates: end: 2017

REACTIONS (2)
  - Genital pain [Unknown]
  - Vulvovaginal discomfort [Not Recovered/Not Resolved]
